FAERS Safety Report 6565289-1 (Version None)
Quarter: 2010Q1

REPORT INFORMATION
  Report Type: 
  Country: None (occurrence: None)
  Receive Date: 20100201
  Receipt Date: 20100125
  Transmission Date: 20100710
  Serious: Yes (Hospitalization)
  Sender: FDA-Public Use
  Company Number: FR-ROCHE-681290

PATIENT
  Sex: Female
  Weight: 44 kg

DRUGS (6)
  1. MIRCERA [Suspect]
     Dosage: LAST DOSE PRIOR TO SAE: 13 MARCH 2009
     Route: 042
     Dates: start: 20090422
  2. LASIX [Concomitant]
     Dates: start: 20070424
  3. AMLOR [Concomitant]
     Dates: start: 20070424
  4. ATENOLOL [Concomitant]
     Dates: start: 20070424
  5. KARDEGIC [Concomitant]
     Dates: start: 20070424
  6. PLAVIX [Concomitant]
     Dates: start: 20080826

REACTIONS (1)
  - HAEMATEMESIS [None]
